FAERS Safety Report 4351184-5 (Version None)
Quarter: 2004Q2

REPORT INFORMATION
  Report Type: 
  Country: None (occurrence: None)
  Receive Date: 20040428
  Receipt Date: 20031203
  Transmission Date: 20050107
  Serious: Yes (Other)
  Sender: FDA-Public Use
  Company Number: US-JNJFOC-20031201225

PATIENT
  Age: 33 Year
  Sex: Female

DRUGS (4)
  1. ULTRAM [Suspect]
     Indication: MIGRAINE
     Dosage: 50 MG, ORAL
     Route: 048
     Dates: start: 20031129
  2. TOPAMAX [Concomitant]
  3. ZOLOFT [Concomitant]
  4. XANAX [Concomitant]

REACTIONS (1)
  - GRAND MAL CONVULSION [None]
